FAERS Safety Report 5262605-8 (Version None)
Quarter: 2007Q1

REPORT INFORMATION
  Report Type: 
  Country: None (occurrence: None)
  Receive Date: 20070312
  Receipt Date: 20070226
  Transmission Date: 20070707
  Serious: Yes (Hospitalization)
  Sender: FDA-Public Use
  Company Number: HQWYE118127FEB07

PATIENT
  Sex: Female
  Weight: 84.9 kg

DRUGS (20)
  1. AMPICILLIN SODIUM/SULBACTAM SODIUM [Suspect]
     Indication: CELLULITIS
     Route: 042
     Dates: start: 20070217, end: 20070221
  2. AMPICILLIN SODIUM/SULBACTAM SODIUM [Suspect]
     Route: 042
     Dates: start: 20070222, end: 20070223
  3. ZANTAC [Concomitant]
     Route: 065
  4. COLCHICINE [Concomitant]
     Indication: GOUT
     Dosage: 0.6 MG EVERY WEEK
     Route: 048
     Dates: start: 20060101
  5. PATANOL [Concomitant]
     Indication: HYPERSENSITIVITY
     Route: 001
     Dates: start: 20070220
  6. ASPIRIN [Concomitant]
     Indication: CARDIOVASCULAR EVENT PROPHYLAXIS
     Route: 048
     Dates: start: 20070220
  7. PYRIDOXINE HCL [Concomitant]
     Indication: MEDICAL DIET
     Route: 048
     Dates: start: 20070220
  8. FOLIC ACID [Concomitant]
     Indication: MEDICAL DIET
  9. ALLEGRA [Concomitant]
     Indication: HYPERSENSITIVITY
     Route: 048
     Dates: start: 20070220
  10. PRINIVIL [Concomitant]
     Indication: CARDIAC FAILURE CONGESTIVE
     Route: 048
     Dates: start: 19570101
  11. KLOR-CON [Concomitant]
     Indication: HYPOKALAEMIA
     Route: 048
     Dates: start: 19770101
  12. KLOR-CON [Concomitant]
     Indication: PROPHYLAXIS
  13. CYMBALTA [Concomitant]
     Indication: DEPRESSION
     Route: 048
  14. LYRICA [Concomitant]
     Indication: NEUROPATHY
     Route: 048
     Dates: start: 20070220
  15. OMEPRAZOLE [Concomitant]
     Indication: GASTROOESOPHAGEAL REFLUX DISEASE
     Route: 048
     Dates: start: 20070220
  16. PLAQUENIL [Concomitant]
     Route: 065
  17. REGLAN [Concomitant]
     Route: 065
  18. ALLOPURINOL [Concomitant]
     Dosage: 200MG DAILY
     Route: 065
  19. LASIX [Concomitant]
     Indication: CARDIAC FAILURE CONGESTIVE
     Route: 048
     Dates: start: 19770101
  20. DILAUDID [Concomitant]
     Indication: NEURALGIA
     Route: 048
     Dates: start: 20010101

REACTIONS (1)
  - RENAL FAILURE ACUTE [None]
